FAERS Safety Report 18996242 (Version 1)
Quarter: 2021Q1

REPORT INFORMATION
  Report Type: Spontaneous
  Country: US (occurrence: US)
  Receive Date: 20210311
  Receipt Date: 20210311
  Transmission Date: 20210420
  Serious: Yes (Hospitalization, Other)
  Sender: FDA-Public Use
  Company Number: US-NOVOPROD-792779

PATIENT
  Sex: Female

DRUGS (3)
  1. NOVOLOG MIX 70/30 [Suspect]
     Active Substance: INSULIN ASPART
     Indication: PRODUCT USED FOR UNKNOWN INDICATION
     Dosage: 130 IU, QD (70 UNITS IN THE MORNING AND 60 UNITS IN THE EVENING)
     Route: 058
  2. METFORMIN [Concomitant]
     Active Substance: METFORMIN HYDROCHLORIDE
     Indication: PRODUCT USED FOR UNKNOWN INDICATION
     Dosage: UNK
     Route: 065
  3. NOVOLOG MIX 70/30 [Suspect]
     Active Substance: INSULIN ASPART
     Dosage: UNK (DOSE INCREASED)
     Route: 058

REACTIONS (7)
  - Hernia [Unknown]
  - Limb injury [Unknown]
  - Injection site haemorrhage [Not Recovered/Not Resolved]
  - Eye haemorrhage [Unknown]
  - Injection site mass [Unknown]
  - Memory impairment [Unknown]
  - Blood glucose increased [Unknown]
